FAERS Safety Report 5736058-7 (Version None)
Quarter: 2008Q2

REPORT INFORMATION
  Report Type: 
  Country: None (occurrence: None)
  Receive Date: 20080513
  Receipt Date: 20080502
  Transmission Date: 20081010
  Serious: Yes (Death)
  Sender: FDA-Public Use
  Company Number: US-ROCHE-562379

PATIENT
  Sex: Female

DRUGS (1)
  1. XELODA [Suspect]
     Dosage: ONE WEEK ON ONE WEEK OFF
     Route: 048
     Dates: start: 20071205

REACTIONS (1)
  - BREAST CANCER METASTATIC [None]
